FAERS Safety Report 23765756 (Version 3)
Quarter: 2024Q4

REPORT INFORMATION
  Report Type: Spontaneous
  Country: FR (occurrence: FR)
  Receive Date: 20240421
  Receipt Date: 20241104
  Transmission Date: 20250115
  Serious: Yes (Death, Other)
  Sender: AUROBINDO
  Company Number: FR-ROCHE-3538038

PATIENT
  Age: 73 Year
  Sex: Male

DRUGS (5)
  1. LENALIDOMIDE [Suspect]
     Active Substance: LENALIDOMIDE
     Indication: Central nervous system lymphoma
     Dosage: UNK
     Route: 065
     Dates: start: 202211
  2. LENALIDOMIDE [Suspect]
     Active Substance: LENALIDOMIDE
     Indication: Diffuse large B-cell lymphoma
  3. RITUXIMAB [Suspect]
     Active Substance: RITUXIMAB
     Indication: Central nervous system lymphoma
     Dosage: UNK
     Route: 065
     Dates: start: 202211
  4. RITUXIMAB [Suspect]
     Active Substance: RITUXIMAB
     Indication: Diffuse large B-cell lymphoma
  5. METHOTREXATE [Concomitant]
     Active Substance: METHOTREXATE
     Indication: Product used for unknown indication
     Dosage: UNK
     Route: 065

REACTIONS (6)
  - Cardio-respiratory arrest [Fatal]
  - Spinal cord neoplasm [Fatal]
  - Disease progression [Fatal]
  - Off label use [Fatal]
  - Epilepsy [Unknown]
  - Product use issue [Unknown]
